FAERS Safety Report 14113230 (Version 3)
Quarter: 2017Q4

REPORT INFORMATION
  Report Type: Spontaneous
  Country: DE (occurrence: DE)
  Receive Date: 20171023
  Receipt Date: 20171127
  Transmission Date: 20180321
  Serious: Yes (Death, Life-Threatening, Hospitalization)
  Sender: FDA-Public Use
  Company Number: PHHY2017DE155285

PATIENT
  Sex: Male

DRUGS (6)
  1. ENTRESTO [Suspect]
     Active Substance: SACUBITRIL\VALSARTAN
     Indication: ISCHAEMIC CARDIOMYOPATHY
  2. FALITHROM [Concomitant]
     Active Substance: PHENPROCOUMON
     Indication: PRODUCT USED FOR UNKNOWN INDICATION
     Dosage: UNK
     Route: 065
  3. ARCOXIA [Concomitant]
     Active Substance: ETORICOXIB
     Indication: GOUT
     Dosage: UNK
     Route: 065
     Dates: start: 2014, end: 201705
  4. ENTRESTO [Suspect]
     Active Substance: SACUBITRIL\VALSARTAN
     Indication: CARDIAC FAILURE CHRONIC
     Dosage: 1 DF(100 MG), BID
     Route: 048
     Dates: start: 20170516
  5. EPLERENONE. [Concomitant]
     Active Substance: EPLERENONE
     Indication: CARDIAC FAILURE
     Dosage: 25 OT, UNK
     Route: 065
     Dates: start: 2014, end: 20170619
  6. EPLERENONE. [Concomitant]
     Active Substance: EPLERENONE
     Indication: CORONARY ARTERY DISEASE

REACTIONS (2)
  - Ischaemic cardiomyopathy [Fatal]
  - Cardiac failure [Fatal]

NARRATIVE: CASE EVENT DATE: 20170729
